FAERS Safety Report 7271597-1 (Version None)
Quarter: 2011Q1

REPORT INFORMATION
  Report Type: 
  Country: None (occurrence: None)
  Receive Date: 20110128
  Receipt Date: 20110128
  Transmission Date: 20110831
  Serious: Yes (Other)
  Sender: FDA-Public Use
  Company Number: None

PATIENT
  Age: 46 Year
  Sex: Female
  Weight: 43.9082 kg

DRUGS (3)
  1. OXYCONTIN [Concomitant]
  2. OXYCONTIN [Suspect]
     Indication: BACK PAIN
     Dosage: 20 MG 2 X DAY, 10 MG 1 X DAY
  3. OXYCONTIN [Suspect]
     Indication: INTERVERTEBRAL DISC DEGENERATION
     Dosage: 20 MG 2 X DAY, 10 MG 1 X DAY

REACTIONS (12)
  - PRODUCT QUALITY ISSUE [None]
  - CONDITION AGGRAVATED [None]
  - MALAISE [None]
  - DECREASED ACTIVITY [None]
  - SNEEZING [None]
  - DRUG INEFFECTIVE [None]
  - COUGH [None]
  - FALL [None]
  - PRODUCT SOLUBILITY ABNORMAL [None]
  - PAIN [None]
  - WRONG TECHNIQUE IN DRUG USAGE PROCESS [None]
  - SUICIDE ATTEMPT [None]
